FAERS Safety Report 7445157-3 (Version None)
Quarter: 2011Q2

REPORT INFORMATION
  Report Type: 
  Country: None (occurrence: None)
  Receive Date: 20110429
  Receipt Date: 20110426
  Transmission Date: 20111010
  Serious: Yes (Hospitalization, Other)
  Sender: FDA-Public Use
  Company Number: US-PFIZER INC-2011089845

PATIENT
  Sex: Female

DRUGS (4)
  1. NEURONTIN [Suspect]
     Indication: CONVULSION
     Dosage: UNK
     Dates: end: 20030101
  2. LAMOTRIGINE [Suspect]
     Indication: CONVULSION
     Dosage: 100 MG, 2X/DAY
     Route: 048
     Dates: start: 20010101, end: 20010101
  3. LAMICTAL [Suspect]
     Indication: CONVULSION
     Dosage: UNK
     Route: 048
  4. DEPAKOTE [Suspect]
     Indication: CONVULSION
     Dosage: UNK
     Dates: end: 20030101

REACTIONS (2)
  - BRAIN OPERATION [None]
  - CONVULSION [None]
